FAERS Safety Report 11730342 (Version 8)
Quarter: 2021Q2

REPORT INFORMATION
  Report Type: Spontaneous
  Country: FR (occurrence: FR)
  Receive Date: 20151112
  Receipt Date: 20210406
  Transmission Date: 20210716
  Serious: Yes (Congenital Anomaly, Other)
  Sender: FDA-Public Use
  Company Number: FR-ABBVIE-15P-056-1498737-00

PATIENT
  Age: 0 Day
  Sex: Male

DRUGS (2)
  1. DEPAKINE [Suspect]
     Active Substance: VALPROATE SODIUM
     Indication: MATERNAL EXPOSURE TIMING UNSPECIFIED
     Route: 064
  2. FOLIC ACID. [Concomitant]
     Active Substance: FOLIC ACID
     Indication: PRODUCT USED FOR UNKNOWN INDICATION

REACTIONS (31)
  - Congenital genitourinary abnormality [Unknown]
  - Dysphemia [Unknown]
  - Disturbance in attention [Unknown]
  - Nasopharyngitis [Unknown]
  - Intellectual disability [Unknown]
  - Speech disorder developmental [Unknown]
  - Motor developmental delay [Unknown]
  - Dysmorphism [Unknown]
  - Speech disorder developmental [Unknown]
  - Inguinal hernia [Unknown]
  - Hydrocephalus [Unknown]
  - Behaviour disorder [Unknown]
  - Learning disorder [Unknown]
  - Developmental delay [Unknown]
  - Developmental delay [Unknown]
  - Aggression [Unknown]
  - Social (pragmatic) communication disorder [Unknown]
  - Echolalia [Unknown]
  - Cognitive disorder [Unknown]
  - Speech disorder [Unknown]
  - Congenital anomaly [Unknown]
  - Developmental coordination disorder [Unknown]
  - Personality disorder [Unknown]
  - Sleep disorder [Unknown]
  - Testicular disorder [Unknown]
  - Autism spectrum disorder [Unknown]
  - Psychomotor hyperactivity [Unknown]
  - Psychomotor retardation [Unknown]
  - Foetal exposure during pregnancy [Unknown]
  - Ear infection [Unknown]
  - Cryptorchism [Unknown]

NARRATIVE: CASE EVENT DATE: 19890616
